FAERS Safety Report 8388209-6 (Version None)
Quarter: 2012Q2

REPORT INFORMATION
  Report Type: 
  Country: None (occurrence: None)
  Receive Date: 20120525
  Receipt Date: 20120521
  Transmission Date: 20120825
  Serious: Yes (Other)
  Sender: FDA-Public Use
  Company Number: DE-TEVA-338987GER

PATIENT
  Age: 71 Year
  Sex: Male
  Weight: 70 kg

DRUGS (1)
  1. ACYCLOVIR [Suspect]
     Indication: HERPES ZOSTER
     Route: 048

REACTIONS (5)
  - DEPRESSION [None]
  - SUICIDAL IDEATION [None]
  - AGGRESSION [None]
  - HALLUCINATION, OLFACTORY [None]
  - RESTLESSNESS [None]
